FAERS Safety Report 25845654 (Version 1)
Quarter: 2025Q3

REPORT INFORMATION
  Report Type: Spontaneous
  Country: US (occurrence: US)
  Receive Date: 20250925
  Receipt Date: 20250925
  Transmission Date: 20251021
  Serious: Yes (Death, Other)
  Sender: SUNOVION
  Company Number: US-SMPA-2025SPA012377

PATIENT
  Age: 83 Year
  Sex: Male

DRUGS (1)
  1. ORGOVYX [Suspect]
     Active Substance: RELUGOLIX
     Indication: Prostate cancer
     Dosage: 120 MG, QD
     Route: 048

REACTIONS (5)
  - Malnutrition [Fatal]
  - Parkinson^s disease [Fatal]
  - Type 2 diabetes mellitus [Fatal]
  - Aphasia [Fatal]
  - Prostate cancer [Fatal]
